FAERS Safety Report 10850426 (Version 1)
Quarter: 2015Q1

REPORT INFORMATION
  Report Type: Report from Study
  Country: RU (occurrence: RU)
  Receive Date: 20150222
  Receipt Date: 20150222
  Transmission Date: 20150721
  Serious: Yes (Death, Hospitalization, Disabling)
  Sender: FDA-Public Use
  Company Number: PHHY2015RU020574

PATIENT
  Sex: Male

DRUGS (1)
  1. IMATINIB [Suspect]
     Active Substance: IMATINIB
     Indication: CHRONIC MYELOID LEUKAEMIA
     Dosage: 600 MG, QD
     Route: 048
     Dates: start: 20090915, end: 20130101

REACTIONS (4)
  - Toxic shock syndrome [Fatal]
  - Malignant neoplasm progression [Fatal]
  - Chronic myeloid leukaemia [Fatal]
  - Sepsis [Fatal]
